FAERS Safety Report 10174671 (Version 1)
Quarter: 2014Q2

REPORT INFORMATION
  Report Type: Spontaneous
  Country: GB (occurrence: GB)
  Receive Date: 20140515
  Receipt Date: 20140515
  Transmission Date: 20141212
  Serious: Yes (Other)
  Sender: FDA-Public Use
  Company Number: GB-GILEAD-2014-0102258

PATIENT
  Age: 50 Year
  Sex: Male

DRUGS (1)
  1. EVIPLERA [Suspect]
     Indication: HIV INFECTION
     Dosage: 1 DF, QD
     Route: 065
     Dates: start: 201403

REACTIONS (2)
  - Hyperbilirubinaemia [Unknown]
  - Jaundice [Unknown]
